FAERS Safety Report 4316548-4 (Version None)
Quarter: 2004Q1

REPORT INFORMATION
  Report Type: 
  Country: None (occurrence: None)
  Receive Date: 20040308
  Receipt Date: 20031201
  Transmission Date: 20041129
  Serious: No
  Sender: FDA-Public Use
  Company Number: PHEH2003US09839

PATIENT
  Age: 63 Year
  Sex: Female
  Weight: 64.4 kg

DRUGS (4)
  1. GLEEVEC [Suspect]
     Indication: CHRONIC MYELOID LEUKAEMIA
     Dosage: 400 MG, QD, ORAL
     Route: 048
     Dates: start: 20010731, end: 20031101
  2. CELEBREX [Concomitant]
  3. INDERAL [Concomitant]
  4. HYDROCHLOROTHIAZIDE [Concomitant]

REACTIONS (5)
  - BLOOD BLISTER [None]
  - DIARRHOEA [None]
  - EYE HAEMORRHAGE [None]
  - EYE PAIN [None]
  - PERIORBITAL OEDEMA [None]
